FAERS Safety Report 18435273 (Version 1)
Quarter: 2020Q4

REPORT INFORMATION
  Report Type: Report from Study
  Country: KR (occurrence: KR)
  Receive Date: 20201028
  Receipt Date: 20201028
  Transmission Date: 20210114
  Serious: Yes (Hospitalization)
  Sender: FDA-Public Use
  Company Number: KR-ASTRAZENECA-2020SF38327

PATIENT
  Age: 812 Month
  Sex: Female
  Weight: 41 kg

DRUGS (2)
  1. MEGACE F SUSP [Concomitant]
     Indication: DECREASED APPETITE
     Route: 065
     Dates: start: 20200303
  2. TAGRISSO [Suspect]
     Active Substance: OSIMERTINIB
     Indication: NON-SMALL CELL LUNG CANCER
     Route: 048
     Dates: start: 20200303, end: 20200928

REACTIONS (1)
  - Dizziness [Not Recovered/Not Resolved]

NARRATIVE: CASE EVENT DATE: 202008
